FAERS Safety Report 9752154 (Version 1)
Quarter: 2013Q4

REPORT INFORMATION
  Report Type: Spontaneous
  Country: US (occurrence: None)
  Receive Date: 20131212
  Receipt Date: 20131212
  Transmission Date: 20140711
  Serious: No
  Sender: FDA-Public Use
  Company Number: None

PATIENT
  Age: 70 Year
  Sex: Female
  Weight: 81.65 kg

DRUGS (1)
  1. MIRVASO 0.33% GALDERMA [Suspect]
     Indication: ROSACEA
     Dosage: APPLY DAB ONCE DAILY TO SURFACE OF SKIN
     Route: 062
     Dates: start: 20131129, end: 20131210

REACTIONS (6)
  - Depression [None]
  - Condition aggravated [None]
  - Rosacea [None]
  - Flushing [None]
  - Application site pain [None]
  - Application site erythema [None]
